FAERS Safety Report 7244389-7 (Version None)
Quarter: 2011Q1

REPORT INFORMATION
  Report Type: 
  Country: None (occurrence: None)
  Receive Date: 20110125
  Receipt Date: 20100616
  Transmission Date: 20110831
  Serious: No
  Sender: FDA-Public Use
  Company Number: US-PFIZER INC-2010075421

PATIENT
  Age: 79 Year
  Sex: Female

DRUGS (7)
  1. ATIVAN [Concomitant]
     Dosage: UNK
  2. IRON [Concomitant]
     Dosage: UNK
  3. ANTIBIOTICS [Concomitant]
     Dosage: UNK
  4. ARGATROBAN [Suspect]
     Indication: HEPARIN-INDUCED THROMBOCYTOPENIA
     Dosage: 21,000 UNITS
     Route: 042
     Dates: start: 20100614
  5. ALTEPLASE [Concomitant]
     Dosage: 2 MG, MORNING
     Dates: start: 20100616
  6. NEXIUM [Concomitant]
     Dosage: UNK
  7. ZOFRAN [Concomitant]
     Dosage: UNK

REACTIONS (1)
  - THERAPEUTIC RESPONSE DECREASED [None]
